FAERS Safety Report 14292348 (Version 2)
Quarter: 2018Q1

REPORT INFORMATION
  Report Type: Spontaneous
  Country: US (occurrence: US)
  Receive Date: 20171215
  Receipt Date: 20180111
  Transmission Date: 20180509
  Serious: No
  Sender: FDA-Public Use
  Company Number: US-DRREDDYS-USA/USA/17/0091867

PATIENT
  Age: 24 Year
  Sex: Male

DRUGS (1)
  1. NICOTINE. [Suspect]
     Active Substance: NICOTINE
     Indication: SMOKING CESSATION THERAPY
     Route: 061
     Dates: start: 20170625

REACTIONS (5)
  - Nausea [Recovered/Resolved]
  - Drug effect increased [Unknown]
  - Dizziness [Recovered/Resolved]
  - Product adhesion issue [Unknown]
  - Drug dose omission [Unknown]
